FAERS Safety Report 20802766 (Version 2)
Quarter: 2022Q2

REPORT INFORMATION
  Report Type: Spontaneous
  Country: US (occurrence: US)
  Receive Date: 20220509
  Receipt Date: 20220603
  Transmission Date: 20220721
  Serious: Yes (Hospitalization, Other)
  Sender: FDA-Public Use
  Company Number: US-MERCK-1108USA01228

PATIENT
  Sex: Female
  Weight: 61.235 kg

DRUGS (6)
  1. FOSAMAX [Suspect]
     Active Substance: ALENDRONATE SODIUM
     Indication: Osteoporosis
     Dosage: 70MG QW
     Route: 048
     Dates: start: 2009, end: 20100313
  2. FOSAMAX [Suspect]
     Active Substance: ALENDRONATE SODIUM
     Indication: Osteopenia
     Dosage: 70 MG, QW
     Route: 048
     Dates: start: 20070905, end: 20080122
  3. FOSAMAX [Suspect]
     Active Substance: ALENDRONATE SODIUM
     Dosage: 70 MG,QW
     Route: 048
     Dates: start: 20081007, end: 20090622
  4. FOSAMAX [Suspect]
     Active Substance: ALENDRONATE SODIUM
     Dosage: 70 MG,QW
     Route: 048
     Dates: start: 20080221, end: 20080903
  5. FORTEO [Suspect]
     Active Substance: TERIPARATIDE
     Dosage: UNK
     Dates: start: 201006, end: 201206
  6. PROLIA [Suspect]
     Active Substance: DENOSUMAB
     Dosage: UNK
     Dates: start: 201307

REACTIONS (41)
  - Fracture nonunion [Unknown]
  - Femur fracture [Unknown]
  - Femur fracture [Recovered/Resolved]
  - Fall [Unknown]
  - Hip fracture [Recovered/Resolved]
  - Device breakage [Unknown]
  - Femur fracture [Unknown]
  - Fracture nonunion [Recovering/Resolving]
  - Hypokalaemia [Unknown]
  - Pelvic fracture [Unknown]
  - Adverse event [Unknown]
  - Tooth disorder [Unknown]
  - Tooth disorder [Unknown]
  - Tooth disorder [Unknown]
  - Tooth disorder [Unknown]
  - Tooth disorder [Unknown]
  - Impaired healing [Unknown]
  - Epicondylitis [Unknown]
  - Herpes virus infection [Unknown]
  - Depressed mood [Unknown]
  - Osteoarthritis [Unknown]
  - Cyst [Unknown]
  - Tooth fracture [Unknown]
  - Toothache [Unknown]
  - Anaemia [Unknown]
  - Sinus disorder [Unknown]
  - Bacterial disease carrier [Unknown]
  - Stress urinary incontinence [Unknown]
  - Large intestine polyp [Unknown]
  - Fall [Unknown]
  - Joint injury [Unknown]
  - Groin pain [Unknown]
  - Seroma [Unknown]
  - Osteoarthritis [Unknown]
  - Tendon disorder [Unknown]
  - Bursitis [Unknown]
  - Breast cyst [Unknown]
  - Pain in jaw [Unknown]
  - Gastrooesophageal reflux disease [Unknown]
  - Pain in extremity [Unknown]
  - Arthralgia [Unknown]

NARRATIVE: CASE EVENT DATE: 20070921
